FAERS Safety Report 4675292-4 (Version None)
Quarter: 2005Q2

REPORT INFORMATION
  Report Type: 
  Country: None (occurrence: None)
  Receive Date: 20050527
  Receipt Date: 20050518
  Transmission Date: 20051028
  Serious: Yes (Other)
  Sender: FDA-Public Use
  Company Number: PHEH2005US05702

PATIENT
  Sex: Male

DRUGS (1)
  1. ENABLEX [Suspect]
     Dates: start: 20050501

REACTIONS (1)
  - BLOOD URINE PRESENT [None]
